FAERS Safety Report 16299724 (Version 2)
Quarter: 2019Q2

REPORT INFORMATION
  Report Type: Spontaneous
  Country: US (occurrence: US)
  Receive Date: 20190510
  Receipt Date: 20190514
  Transmission Date: 20190711
  Serious: Yes (Hospitalization, Other)
  Sender: FDA-Public Use
  Company Number: US-PFIZER INC-2019200983

PATIENT
  Age: 53 Year
  Sex: Female
  Weight: 117.91 kg

DRUGS (4)
  1. XANAX [Suspect]
     Active Substance: ALPRAZOLAM
     Indication: POST-TRAUMATIC STRESS DISORDER
     Dosage: UNK
  2. XANAX [Suspect]
     Active Substance: ALPRAZOLAM
     Indication: GENERALISED ANXIETY DISORDER
  3. XANAX [Suspect]
     Active Substance: ALPRAZOLAM
     Indication: PANIC DISORDER
  4. XANAX [Suspect]
     Active Substance: ALPRAZOLAM
     Indication: POST-TRAUMATIC STRESS DISORDER

REACTIONS (6)
  - Fall [Not Recovered/Not Resolved]
  - Road traffic accident [Recovered/Resolved with Sequelae]
  - Drug dependence [Not Recovered/Not Resolved]
  - Pain [Not Recovered/Not Resolved]
  - Back disorder [Recovered/Resolved with Sequelae]
  - Intentional product use issue [Unknown]

NARRATIVE: CASE EVENT DATE: 2011
